FAERS Safety Report 4693986-1 (Version None)
Quarter: 2005Q2

REPORT INFORMATION
  Report Type: 
  Country: None (occurrence: None)
  Receive Date: 20050616
  Receipt Date: 20050531
  Transmission Date: 20051028
  Serious: Yes (Death)
  Sender: FDA-Public Use
  Company Number: DSA_70659_2005

PATIENT
  Age: 71 Year
  Sex: Male

DRUGS (4)
  1. DARVON [Suspect]
     Dosage: DF
  2. CELEXA [Suspect]
     Indication: DEPRESSION
     Dosage: DF
     Dates: start: 20040501, end: 20040501
  3. TOPROL-XL [Suspect]
     Dosage: DF
     Dates: end: 20040501
  4. AMBIEN [Suspect]
     Indication: INSOMNIA
     Dosage: DF
     Dates: end: 20040501

REACTIONS (7)
  - COMPLETED SUICIDE [None]
  - DIVERTICULUM INTESTINAL [None]
  - DRUG TOXICITY [None]
  - INTENTIONAL MISUSE [None]
  - PULMONARY CONGESTION [None]
  - PULMONARY OEDEMA [None]
  - RENAL CYST [None]
